FAERS Safety Report 8255713-0 (Version None)
Quarter: 2012Q2

REPORT INFORMATION
  Report Type: 
  Country: None (occurrence: None)
  Receive Date: 20120403
  Receipt Date: 20120403
  Transmission Date: 20120825
  Serious: No
  Sender: FDA-Public Use
  Company Number: None

PATIENT
  Sex: Male
  Weight: 102.96 kg

DRUGS (1)
  1. DOXORUBICIN HCL [Suspect]
     Indication: LYMPHOMA
     Dosage: 117MG
     Route: 040
     Dates: start: 20120103, end: 20120402

REACTIONS (2)
  - HYPERSENSITIVITY [None]
  - URTICARIA [None]
